FAERS Safety Report 17821294 (Version 5)
Quarter: 2020Q3

REPORT INFORMATION
  Report Type: Spontaneous
  Country: JP (occurrence: JP)
  Receive Date: 20200525
  Receipt Date: 20200721
  Transmission Date: 20201102
  Serious: Yes (Death, Hospitalization)
  Sender: FDA-Public Use
  Company Number: JP-ASTRAZENECA-2020SE67296

PATIENT
  Age: 29175 Day
  Sex: Male
  Weight: 70 kg

DRUGS (13)
  1. CALBLOCK [Concomitant]
     Active Substance: AZELNIDIPINE
     Indication: HYPERTENSION
     Route: 048
  2. FASENRA [Suspect]
     Active Substance: BENRALIZUMAB
     Indication: ASTHMA
     Dosage: 30 MG, EVERY THREE MONTHS
     Route: 058
     Dates: start: 20181126, end: 20200330
  3. KREMEZIN [Concomitant]
     Active Substance: ACTIVATED CHARCOAL
     Indication: CHRONIC KIDNEY DISEASE
     Route: 048
  4. MAINTATE [Concomitant]
     Active Substance: BISOPROLOL FUMARATE
     Indication: HYPERTENSION
     Route: 048
  5. PROGRAF [Concomitant]
     Active Substance: TACROLIMUS
     Indication: LIVER TRANSPLANT
     Route: 048
  6. ADALAT CC [Concomitant]
     Active Substance: NIFEDIPINE
     Indication: HYPERTENSION
     Route: 048
  7. KIPRES [Concomitant]
     Active Substance: MONTELUKAST SODIUM
     Indication: ASTHMA
     Route: 048
  8. DIART [Concomitant]
     Active Substance: AZOSEMIDE
     Indication: HYPERTENSION
     Route: 048
  9. PULMICORT TURBUHALER [Concomitant]
     Active Substance: BUDESONIDE
     Indication: ASTHMA
     Route: 055
  10. SPIRIVA [Concomitant]
     Active Substance: TIOTROPIUM BROMIDE MONOHYDRATE
     Indication: ASTHMA
     Route: 055
  11. PREDONINE [Concomitant]
     Active Substance: PREDNISOLONE
     Indication: ASTHMA
     Route: 048
  12. ELIQUIS [Concomitant]
     Active Substance: APIXABAN
     Indication: ATRIAL FIBRILLATION
     Route: 048
  13. JARDIANCE [Concomitant]
     Active Substance: EMPAGLIFLOZIN
     Indication: TYPE 2 DIABETES MELLITUS
     Route: 048

REACTIONS (4)
  - Skin ulcer [Recovered/Resolved]
  - Sepsis [Not Recovered/Not Resolved]
  - Septic shock [Fatal]
  - Cellulitis [Unknown]

NARRATIVE: CASE EVENT DATE: 20200109
